FAERS Safety Report 7953043-5 (Version None)
Quarter: 2011Q4

REPORT INFORMATION
  Report Type: 
  Country: None (occurrence: None)
  Receive Date: 20111201
  Receipt Date: 20111122
  Transmission Date: 20120403
  Serious: Yes (Other)
  Sender: FDA-Public Use
  Company Number: BR-ASTRAZENECA-2011SE14257

PATIENT
  Age: 54 Year
  Sex: Female
  Weight: 85 kg

DRUGS (6)
  1. SYMBICORT [Suspect]
     Dosage: 320/9MCG UNKNOWN
     Route: 055
     Dates: start: 20110803, end: 20111122
  2. NEXIUM [Suspect]
     Route: 048
  3. NASONEX [Concomitant]
     Route: 045
     Dates: start: 20110803
  4. NEXIUM [Suspect]
     Indication: GASTROOESOPHAGEAL REFLUX DISEASE
     Route: 048
     Dates: start: 20101201
  5. FLUOXETINE HCL [Concomitant]
     Indication: DEPRESSION
     Dosage: FREQUENCY EVERY DAY
     Route: 048
     Dates: start: 20060101
  6. NEXIUM [Suspect]
     Route: 048
     Dates: start: 20110301, end: 20111122

REACTIONS (18)
  - SOMNOLENCE [None]
  - TELANGIECTASIA [None]
  - TACHYCARDIA [None]
  - EAR PAIN [None]
  - THYROID DISORDER [None]
  - RHINITIS [None]
  - URINARY INCONTINENCE [None]
  - FEELING COLD [None]
  - TREMOR [None]
  - LOWER RESPIRATORY TRACT INFECTION [None]
  - RENAL PAIN [None]
  - BLOOD CHOLESTEROL INCREASED [None]
  - LARYNGITIS [None]
  - GASTROOESOPHAGEAL REFLUX DISEASE [None]
  - LUNG INFILTRATION [None]
  - COUGH [None]
  - PAIN IN EXTREMITY [None]
  - DRUG INEFFECTIVE [None]
